FAERS Safety Report 19447430 (Version 1)
Quarter: 2021Q2

REPORT INFORMATION
  Report Type: Spontaneous
  Country: US (occurrence: US)
  Receive Date: 20210621
  Receipt Date: 20210621
  Transmission Date: 20210717
  Serious: Yes (Other)
  Sender: FDA-Public Use
  Company Number: None

PATIENT
  Age: 60 Year
  Sex: Female

DRUGS (13)
  1. PRALUENT [Suspect]
     Active Substance: ALIROCUMAB
     Indication: HYPERLIPIDAEMIA
     Dosage: ?          OTHER FREQUENCY:Q 2 WEEKS;?
     Route: 058
     Dates: start: 20190724
  2. VITAMIN C [Concomitant]
     Active Substance: ASCORBIC ACID
  3. FUROSEMIDE. [Concomitant]
     Active Substance: FUROSEMIDE
  4. HUMALOG [Concomitant]
     Active Substance: INSULIN LISPRO
  5. VITAMIN D [Concomitant]
     Active Substance: VITAMIN D NOS
  6. ASPIRIN. [Concomitant]
     Active Substance: ASPIRIN
  7. ROSUVASTATIN. [Concomitant]
     Active Substance: ROSUVASTATIN
  8. TRULICITY [Concomitant]
     Active Substance: DULAGLUTIDE
  9. BASAGLAR KWIKPEN [Concomitant]
     Active Substance: INSULIN GLARGINE
  10. MELATONIN [Concomitant]
     Active Substance: MELATONIN
  11. LISINOPRIL. [Concomitant]
     Active Substance: LISINOPRIL
  12. SERTRALINE [Concomitant]
     Active Substance: SERTRALINE HYDROCHLORIDE
  13. ONCE DAILY VITAMIN GUMMY [Concomitant]

REACTIONS (2)
  - Lactose intolerance [None]
  - Diarrhoea [None]
